FAERS Safety Report 10993339 (Version 1)
Quarter: 2015Q2

REPORT INFORMATION
  Report Type: Spontaneous
  Country: FR (occurrence: FR)
  Receive Date: 20150407
  Receipt Date: 20150407
  Transmission Date: 20150821
  Serious: Yes (Other)
  Sender: FDA-Public Use
  Company Number: FR-ASTRAZENECA-2014SE95114

PATIENT
  Age: 22211 Day
  Sex: Male
  Weight: 81 kg

DRUGS (9)
  1. SEROPLEX [Concomitant]
     Active Substance: ESCITALOPRAM OXALATE
  2. TARKA [Concomitant]
     Active Substance: TRANDOLAPRIL\VERAPAMIL HYDROCHLORIDE
     Indication: HYPERTENSION
  3. PULMICORT RESPULES [Suspect]
     Active Substance: BUDESONIDE
     Indication: BRONCHITIS
     Dosage: ONE NEBULIZATION EVERY MORNING, AT MIDDAY AND EVERY EVENING
     Route: 055
     Dates: start: 20141130, end: 20141203
  4. LYRICA [Concomitant]
     Active Substance: PREGABALIN
     Indication: NEURALGIA
     Dosage: 75 MG, 3 DF THREE TIMES A DAY
  5. PLAVIX [Concomitant]
     Active Substance: CLOPIDOGREL BISULFATE
     Dosage: ONE TIME PER DAY
  6. ORELOX [Concomitant]
     Active Substance: CEFPODOXIME
     Indication: BRONCHITIS
     Dates: start: 20141130, end: 20141207
  7. MUCOMYSTENDO [Suspect]
     Active Substance: ACETYLCYSTEINE
     Indication: BRONCHITIS
     Dosage: ONE VIAL THREE TIMES PER DAY, ONE NEBULIZATION EVERY MORNING, AT MIDDAY AND EVERY EVENING
     Route: 055
     Dates: start: 20141201, end: 20141203
  8. PRAVASTATINE ZENTIVA [Concomitant]
     Active Substance: PRAVASTATIN SODIUM
     Indication: HYPERCHOLESTEROLAEMIA
  9. OMEPRAZOLE WINTHROP [Concomitant]
     Indication: ABDOMINAL PAIN UPPER
     Dosage: NON-AZ PRODUCT, 20 MG DAILY

REACTIONS (7)
  - Off label use [Recovered/Resolved]
  - Nasal discomfort [Recovered/Resolved]
  - Throat irritation [Recovered/Resolved]
  - Haemoptysis [Recovered/Resolved]
  - Epistaxis [Recovered/Resolved]
  - Headache [Recovered/Resolved]
  - Cough [Recovered/Resolved]

NARRATIVE: CASE EVENT DATE: 20141130
